FAERS Safety Report 15274545 (Version 1)
Quarter: 2018Q3

REPORT INFORMATION
  Report Type: Report from Study
  Country: AU (occurrence: AU)
  Receive Date: 20180814
  Receipt Date: 20180814
  Transmission Date: 20181010
  Serious: Yes (Other)
  Sender: FDA-Public Use
  Company Number: AU-BIOGEN-2017BI00421511

PATIENT
  Sex: Female

DRUGS (2)
  1. TYSABRI [Suspect]
     Active Substance: NATALIZUMAB
     Indication: MULTIPLE SCLEROSIS
     Dosage: INFUSED OVER 1 HOUR
     Route: 042
     Dates: start: 20130101
  2. TYSABRI [Suspect]
     Active Substance: NATALIZUMAB
     Dosage: INFUSED OVER 1 HOUR
     Route: 042
     Dates: end: 20180802

REACTIONS (12)
  - Prescribed underdose [Recovered/Resolved]
  - Fatigue [Not Recovered/Not Resolved]
  - Accidental poisoning [Unknown]
  - Vaginal prolapse [Not Recovered/Not Resolved]
  - Nausea [Recovered/Resolved]
  - Amnesia [Unknown]
  - Cognitive disorder [Unknown]
  - Back pain [Unknown]
  - Tuberculosis [Unknown]
  - Hepatitis B [Unknown]
  - Stress [Unknown]
  - Anxiety [Unknown]
